FAERS Safety Report 21897054 (Version 1)
Quarter: 2023Q1

REPORT INFORMATION
  Report Type: Spontaneous
  Country: US (occurrence: US)
  Receive Date: 20230123
  Receipt Date: 20230123
  Transmission Date: 20230417
  Serious: Yes (Life-Threatening, Hospitalization)
  Sender: FDA-Public Use
  Company Number: None

PATIENT
  Age: 58 Year
  Sex: Male
  Weight: 168.28 kg

DRUGS (2)
  1. HEPARIN SODIUM [Suspect]
     Active Substance: HEPARIN SODIUM
     Indication: Anticoagulant therapy
     Dosage: A TOTAL OF 7000
     Dates: start: 20221117
  2. TIROFIBAN [Concomitant]
     Active Substance: TIROFIBAN
     Dosage: UNKNOWN

REACTIONS (2)
  - Vascular stent thrombosis [Unknown]
  - Therapeutic product ineffective [Unknown]

NARRATIVE: CASE EVENT DATE: 20221117
